FAERS Safety Report 6011480-2 (Version None)
Quarter: 2008Q4

REPORT INFORMATION
  Report Type: 
  Country: None (occurrence: None)
  Receive Date: 20081218
  Receipt Date: 20081212
  Transmission Date: 20090506
  Serious: Yes (Hospitalization)
  Sender: FDA-Public Use
  Company Number: US-TYCO HEALTHCARE/MALLINCKRODT-T200801884

PATIENT
  Sex: Female
  Weight: 36.054 kg

DRUGS (14)
  1. METHADOSE [Suspect]
     Indication: DRUG DEPENDENCE
     Dosage: 150 MG, QD
     Dates: start: 20080301
  2. METHADOSE [Suspect]
     Dosage: 90 MG, QD (1 IN 1 D)
     Route: 048
     Dates: start: 20050601, end: 20080301
  3. METHADOSE [Suspect]
     Dosage: 70 MG, QD (1 IN 1 D)
     Dates: start: 20080501, end: 20080520
  4. METHADOSE [Suspect]
     Dosage: 30 MG, QD
     Dates: start: 20080515, end: 20080501
  5. METHADOSE [Suspect]
     Dosage: 80 MG, QD
     Dates: start: 20080521
  6. MARAVIROC [Suspect]
     Indication: HIV INFECTION
     Dosage: 300 MG, BID
     Route: 048
     Dates: start: 20060221, end: 20071212
  7. CLONIDINE [Suspect]
     Indication: DRUG ABUSE
  8. KLONOPIN [Suspect]
     Indication: MENTAL DISORDER
     Route: 048
     Dates: start: 20060927
  9. QUETIAPINE FUMARATE [Concomitant]
     Route: 048
     Dates: start: 20060927
  10. PROMETHAZINE [Concomitant]
     Route: 048
     Dates: start: 20060101
  11. PAXIL [Concomitant]
     Indication: MENTAL DISORDER
     Route: 048
     Dates: start: 20080501
  12. ATAZANAVIR SULFATE [Concomitant]
     Route: 048
     Dates: start: 20080411
  13. EPZICOM [Concomitant]
     Route: 048
     Dates: start: 20080411
  14. VALIUM [Concomitant]
     Dosage: 10 MG, UNK
     Dates: start: 20080101

REACTIONS (6)
  - DRUG ABUSE [None]
  - DRUG WITHDRAWAL CONVULSIONS [None]
  - ELECTROCARDIOGRAM QT PROLONGED [None]
  - INTENTIONAL DRUG MISUSE [None]
  - OVERDOSE [None]
  - SYNCOPE [None]
